FAERS Safety Report 5838972-0 (Version None)
Quarter: 2008Q3

REPORT INFORMATION
  Report Type: 
  Country: None (occurrence: None)
  Receive Date: 20080808
  Receipt Date: 20080728
  Transmission Date: 20090109
  Serious: No
  Sender: FDA-Public Use
  Company Number: US-BOEHRINGER INGELHEIM GMBH, GERMANY-2007-BP-00515BP

PATIENT
  Sex: Female

DRUGS (9)
  1. SPIRIVA [Suspect]
     Indication: CHRONIC OBSTRUCTIVE PULMONARY DISEASE
     Route: 055
     Dates: start: 20030601
  2. SPIRIVA [Suspect]
     Indication: EMPHYSEMA
  3. DIGOXIN [Concomitant]
     Indication: ATRIAL FIBRILLATION
     Route: 048
     Dates: start: 20040101
  4. ADVAIR DISKUS 100/50 [Concomitant]
  5. ALBUTEROL [Concomitant]
  6. CARDIZEM [Concomitant]
     Indication: ATRIAL FIBRILLATION
     Route: 048
     Dates: start: 20040101
  7. OXYGEN [Concomitant]
     Indication: EMPHYSEMA
     Route: 045
     Dates: start: 20020101
  8. TRUSOPT [Concomitant]
  9. AZOPT [Concomitant]
     Indication: GLAUCOMA
     Dates: start: 20030101

REACTIONS (4)
  - ATRIAL FIBRILLATION [None]
  - DRY MOUTH [None]
  - DRY SKIN [None]
  - URINARY RETENTION [None]
